FAERS Safety Report 12189969 (Version 1)
Quarter: 2016Q1

REPORT INFORMATION
  Report Type: Spontaneous
  Country: US (occurrence: US)
  Receive Date: 20160318
  Receipt Date: 20160318
  Transmission Date: 20160526
  Serious: Yes (Hospitalization)
  Sender: FDA-Public Use
  Company Number: US-BEH-2016060165

PATIENT
  Sex: Female
  Weight: 76 kg

DRUGS (25)
  1. PROMETHAZINE [Concomitant]
     Active Substance: PROMETHAZINE\PROMETHAZINE HYDROCHLORIDE
  2. VITAMIN D [Concomitant]
     Active Substance: CHOLECALCIFEROL
  3. ALLEGRA [Concomitant]
     Active Substance: FEXOFENADINE HYDROCHLORIDE
  4. CARAFATE [Concomitant]
     Active Substance: SUCRALFATE
  5. LIDOCAINE/PRILOCAINE [Concomitant]
  6. EPIPEN [Concomitant]
     Active Substance: EPINEPHRINE
  7. PRIMIDONE. [Concomitant]
     Active Substance: PRIMIDONE
  8. KARIVA [Concomitant]
     Active Substance: DESOGESTREL\ETHINYL ESTRADIOL
  9. NEXIUM [Concomitant]
     Active Substance: ESOMEPRAZOLE MAGNESIUM
  10. MOTRIN [Concomitant]
     Active Substance: IBUPROFEN
  11. ENALAPRIL [Concomitant]
     Active Substance: ENALAPRIL
  12. SAVELLA [Concomitant]
     Active Substance: MILNACIPRAN HYDROCHLORIDE
  13. HIZENTRA [Suspect]
     Active Substance: HUMAN IMMUNOGLOBULIN G
     Indication: HYPOGAMMAGLOBULINAEMIA
     Dosage: STRENGTH OF DOSAGE FORM: 4GM 20ML VIALS
     Route: 058
  14. ONE-A-DAY WOMEN^S [Concomitant]
     Active Substance: VITAMINS
  15. DONNATAL [Concomitant]
     Active Substance: ATROPINE SULFATE\HYOSCYAMINE SULFATE\PHENOBARBITAL\SCOPOLAMINE HYDROBROMIDE
  16. AZITHROMYCIN ANHYDROUS. [Concomitant]
     Active Substance: AZITHROMYCIN ANHYDROUS
  17. ATENOLOL. [Concomitant]
     Active Substance: ATENOLOL
  18. LEVOTHYROXINE. [Concomitant]
     Active Substance: LEVOTHYROXINE
  19. BENTYL [Concomitant]
     Active Substance: DICYCLOMINE HYDROCHLORIDE
  20. XIFAXAN [Concomitant]
     Active Substance: RIFAXIMIN
  21. ACETAMINOPHEN. [Concomitant]
     Active Substance: ACETAMINOPHEN
  22. DIPHENHYDRAMINE. [Concomitant]
     Active Substance: DIPHENHYDRAMINE
  23. CALTRATE+D [Concomitant]
  24. PROBIOTIC [Concomitant]
     Active Substance: PROBIOTICS NOS
  25. VERAMYST [Concomitant]
     Active Substance: FLUTICASONE FUROATE

REACTIONS (3)
  - Oral fungal infection [Unknown]
  - Oral herpes [Unknown]
  - Impaired gastric emptying [Unknown]
